FAERS Safety Report 23393983 (Version 1)
Quarter: 2024Q1

REPORT INFORMATION
  Report Type: Spontaneous
  Country: GB (occurrence: GB)
  Receive Date: 20240111
  Receipt Date: 20240111
  Transmission Date: 20240409
  Serious: Yes (Hospitalization, Other)
  Sender: FDA-Public Use
  Company Number: None

PATIENT
  Age: 83 Year
  Sex: Male
  Weight: 105.2 kg

DRUGS (13)
  1. BISOPROLOL [Suspect]
     Active Substance: BISOPROLOL\BISOPROLOL FUMARATE
     Indication: Product used for unknown indication
     Dosage: 1 DOSAGE FORM, QD (ONE TABLET DAILY)
     Route: 065
     Dates: start: 20231212
  2. EPLERENONE [Suspect]
     Active Substance: EPLERENONE
     Indication: Product used for unknown indication
     Dosage: 0.5 DOSAGE FORM, QD (HALF A TABLET TO BE TAKEN EACH DAY)
     Route: 065
     Dates: start: 20231212, end: 20231221
  3. AMOXICILLIN [Suspect]
     Active Substance: AMOXICILLIN
     Indication: Product used for unknown indication
     Dosage: 2 DOSAGE FORM, TID (TWO TO BE TAKEN THREE TIMES A DAY)
     Route: 065
     Dates: start: 20231212, end: 20231216
  4. DAPAGLIFLOZIN [Suspect]
     Active Substance: DAPAGLIFLOZIN
     Indication: Product used for unknown indication
     Dosage: 1 DOSAGE FORM, QD (ONE TO BE TAKEN DAILY)
     Route: 065
     Dates: start: 20231212, end: 20231221
  5. FUROSEMIDE [Suspect]
     Active Substance: FUROSEMIDE
     Indication: Product used for unknown indication
     Dosage: 2 DOSAGE FORM, BID (TWO TABLETS TWICE DAILY)
     Route: 065
     Dates: start: 20231212, end: 20231221
  6. SACUBITRIL\VALSARTAN [Suspect]
     Active Substance: SACUBITRIL\VALSARTAN
     Indication: Product used for unknown indication
     Dosage: 1 DOSAGE FORM, BID (ONE TO BE TAKEN TWICE A DAY)
     Route: 065
     Dates: start: 20231212, end: 20231224
  7. BISOPROLOL [Concomitant]
     Active Substance: BISOPROLOL\BISOPROLOL FUMARATE
     Dosage: 1 DOSAGE FORM, AM (ONE TO BE TAKEN EACH MORNING)
     Route: 065
     Dates: start: 20231220
  8. DAPAGLIFLOZIN [Concomitant]
     Active Substance: DAPAGLIFLOZIN
     Dosage: 1 DOSAGE FORM, AM (ONE DAILY IN THE MORNING)
     Route: 065
     Dates: start: 20231220
  9. EPLERENONE [Concomitant]
     Active Substance: EPLERENONE
     Dosage: 0.5 DOSAGE FORM, AM (HALF A TABLET ONCE DAILY IN THE MORNING)
     Route: 065
     Dates: start: 20231220
  10. FUROSEMIDE [Concomitant]
     Active Substance: FUROSEMIDE
     Dosage: 2 DOSAGE FORM, BID (TWO TABLETS IN THE MORNING AND TWO AT LUNCHTIME)
     Route: 065
     Dates: start: 20231220
  11. LINAGLIPTIN [Concomitant]
     Active Substance: LINAGLIPTIN
     Dosage: 1 DOSAGE FORM, QD (ONE TABLET DAILY AT THE SAME TIME EACH DAY)
     Route: 065
     Dates: start: 20231228
  12. METFORMIN [Concomitant]
     Active Substance: METFORMIN HYDROCHLORIDE
     Dosage: UNK
     Route: 065
  13. SACUBITRIL\VALSARTAN [Concomitant]
     Active Substance: SACUBITRIL\VALSARTAN
     Dosage: 1 DOSAGE FORM, BID (ONE TO BE TAKEN TWICE A DAY)
     Route: 065
     Dates: start: 20231220

REACTIONS (3)
  - Renal tubular acidosis [Unknown]
  - Acute kidney injury [Unknown]
  - Hyperkalaemia [Unknown]

NARRATIVE: CASE EVENT DATE: 20231221
